FAERS Safety Report 15722706 (Version 2)
Quarter: 2019Q1

REPORT INFORMATION
  Report Type: Spontaneous
  Country: IT (occurrence: IT)
  Receive Date: 20181214
  Receipt Date: 20190110
  Transmission Date: 20190417
  Serious: Yes (Death)
  Sender: FDA-Public Use
  Company Number: IT-JNJFOC-20181211300

PATIENT
  Age: 71 Year
  Sex: Male

DRUGS (1)
  1. DARZALEX [Suspect]
     Active Substance: DARATUMUMAB
     Indication: PLASMA CELL MYELOMA
     Route: 042
     Dates: start: 20180908, end: 20181002

REACTIONS (6)
  - Nausea [Fatal]
  - Asthenia [Fatal]
  - Acute kidney injury [Fatal]
  - Fatigue [Fatal]
  - Decreased appetite [Fatal]
  - Scrotal oedema [Fatal]

NARRATIVE: CASE EVENT DATE: 20181003
